FAERS Safety Report 9809021 (Version 2)
Quarter: 2014Q1

REPORT INFORMATION
  Report Type: Spontaneous
  Country: FR (occurrence: FR)
  Receive Date: 20140110
  Receipt Date: 20140124
  Transmission Date: 20141002
  Serious: Yes (Hospitalization)
  Sender: FDA-Public Use
  Company Number: FR-GLAXOSMITHKLINE-B0956816A

PATIENT
  Age: 23 Year
  Sex: Female

DRUGS (2)
  1. ZELITREX [Suspect]
     Indication: ORAL HERPES
     Dosage: 500MG PER DAY
     Route: 048
     Dates: end: 20120726
  2. DESOGESTREL + ETHINYLOESTRADIOL [Concomitant]
     Indication: ORAL CONTRACEPTION
     Route: 048

REACTIONS (3)
  - Pancreatitis acute [Recovered/Resolved]
  - Abdominal pain upper [Recovered/Resolved]
  - Lipase increased [Recovered/Resolved]
